FAERS Safety Report 4664760-7 (Version None)
Quarter: 2005Q2

REPORT INFORMATION
  Report Type: 
  Country: None (occurrence: None)
  Receive Date: 20050516
  Receipt Date: 20050510
  Transmission Date: 20051028
  Serious: Yes (Life-Threatening, Hospitalization)
  Sender: FDA-Public Use
  Company Number: 2005-127782-NL

PATIENT
  Age: 34 Year
  Sex: Female

DRUGS (5)
  1. MIRTAZAPINE [Suspect]
     Dosage: 30 MG ORAL
     Route: 048
  2. METADON [Suspect]
     Dosage: 100 MG
  3. ZOPICLONE [Suspect]
     Dosage: DF
  4. MODURETIC MITE [Suspect]
     Dosage: DF
  5. ZOLPIDEM TARTRATE [Suspect]
     Dosage: 7.5 MG

REACTIONS (1)
  - CARDIAC ARREST [None]
